FAERS Safety Report 13385033 (Version 1)
Quarter: 2017Q1

REPORT INFORMATION
  Report Type: Spontaneous
  Country: US (occurrence: US)
  Receive Date: 20170329
  Receipt Date: 20170329
  Transmission Date: 20170429
  Serious: No
  Sender: FDA-Public Use
  Company Number: US-SMITH AND NEPHEW, INC-2017SMT00062

PATIENT
  Sex: Male

DRUGS (2)
  1. COLLAGENASE SANTYL [Suspect]
     Active Substance: COLLAGENASE CLOSTRIDIUM HISTOLYTICUM
     Indication: THERMAL BURN
     Route: 061
  2. UNSPECIFIED SILVER PRODUCT [Suspect]
     Active Substance: SILVER

REACTIONS (4)
  - Drug administration error [Unknown]
  - Application site swelling [None]
  - Wrong technique in product usage process [None]
  - Swelling [Unknown]
